FAERS Safety Report 10470632 (Version 1)
Quarter: 2014Q3

REPORT INFORMATION
  Report Type: Spontaneous
  Country: US (occurrence: US)
  Receive Date: 20140923
  Receipt Date: 20140923
  Transmission Date: 20150326
  Serious: Yes (Other)
  Sender: FDA-Public Use
  Company Number: US-ELI_LILLY_AND_COMPANY-US201409005753

PATIENT
  Age: 46 Year
  Sex: Male
  Weight: 99.77 kg

DRUGS (1)
  1. HUMALOG [Suspect]
     Active Substance: INSULIN LISPRO
     Indication: PRODUCT USED FOR UNKNOWN INDICATION
     Route: 058

REACTIONS (5)
  - Blood glucose increased [Recovered/Resolved]
  - Feeling abnormal [Unknown]
  - Eye haemorrhage [Unknown]
  - Blood glucose increased [Unknown]
  - Infusion site pain [Unknown]

NARRATIVE: CASE EVENT DATE: 20140911
